FAERS Safety Report 5242208-1 (Version None)
Quarter: 2007Q1

REPORT INFORMATION
  Report Type: 
  Country: None (occurrence: None)
  Receive Date: 20070213
  Receipt Date: 20070129
  Transmission Date: 20070707
  Serious: Yes (Other)
  Sender: FDA-Public Use
  Company Number: S07-UKI-00611-01

PATIENT
  Age: 50 Year
  Sex: Female

DRUGS (3)
  1. CITALOPRAM HYDROBROMIDE [Suspect]
     Indication: DEPRESSION
     Dosage: 10 MG QD PO
     Route: 048
     Dates: start: 20061204, end: 20070108
  2. CODEINE PHOSPHATE [Concomitant]
  3. COLOFAC (MEBEVERINE HYDROCHLORIDE) [Concomitant]

REACTIONS (2)
  - RASH MACULAR [None]
  - URTICARIA GENERALISED [None]
